FAERS Safety Report 5133561-8 (Version None)
Quarter: 2006Q4

REPORT INFORMATION
  Report Type: 
  Country: None (occurrence: None)
  Receive Date: 20061018
  Receipt Date: 20061005
  Transmission Date: 20070319
  Serious: Yes (Other)
  Sender: FDA-Public Use
  Company Number: 2006123183

PATIENT
  Age: 20 Year
  Sex: Female
  Weight: 81.6475 kg

DRUGS (2)
  1. GEODON [Suspect]
     Indication: BIPOLAR DISORDER
     Dosage: 20 MG
     Dates: end: 20061002
  2. KLONOPIN [Suspect]

REACTIONS (13)
  - AGGRESSION [None]
  - ANGER [None]
  - BODY DYSMORPHIC DISORDER [None]
  - DEPRESSION [None]
  - DRUG EFFECT INCREASED [None]
  - DRUG INEFFECTIVE [None]
  - DRUG WITHDRAWAL SYNDROME [None]
  - FEAR [None]
  - FEELING ABNORMAL [None]
  - HEADACHE [None]
  - INSOMNIA [None]
  - SUICIDAL IDEATION [None]
  - TREMOR [None]
